FAERS Safety Report 9989841 (Version 1)
Quarter: 2014Q1

REPORT INFORMATION
  Report Type: Report from Study
  Country: US (occurrence: US)
  Receive Date: 20140310
  Receipt Date: 20140310
  Transmission Date: 20141002
  Serious: No
  Sender: FDA-Public Use
  Company Number: US-ABBVIE-13P-163-1130110-00

PATIENT
  Age: 28 Year
  Sex: Female
  Weight: 56.75 kg

DRUGS (1)
  1. HUMIRA [Suspect]
     Indication: PSORIASIS
     Dates: start: 2012, end: 201307

REACTIONS (4)
  - Drug dose omission [Unknown]
  - Pruritus [Not Recovered/Not Resolved]
  - Sinusitis [Recovering/Resolving]
  - Psoriasis [Not Recovered/Not Resolved]
